FAERS Safety Report 18292899 (Version 1)
Quarter: 2020Q3

REPORT INFORMATION
  Report Type: Spontaneous
  Country: JP (occurrence: JP)
  Receive Date: 20200921
  Receipt Date: 20200921
  Transmission Date: 20201103
  Serious: Yes (Death, Hospitalization)
  Sender: FDA-Public Use
  Company Number: JP-PURDUE-USA-2020-0166465

PATIENT
  Sex: Female

DRUGS (28)
  1. TAGRISSO [Suspect]
     Active Substance: OSIMERTINIB
     Dosage: 40 MG, DAILY
     Route: 048
     Dates: start: 20200702, end: 20200821
  2. SULPIRIDE [Suspect]
     Active Substance: SULPIRIDE
     Dosage: UNK
     Route: 048
  3. TAPENTADOL HYDROCHLORIDE [Suspect]
     Active Substance: TAPENTADOL HYDROCHLORIDE
     Dosage: 100 MG, DAILY
     Route: 048
     Dates: start: 20200624, end: 20200716
  4. LOXOPROFEN SODIUM [Concomitant]
     Active Substance: LOXOPROFEN SODIUM
     Indication: PAIN
     Dosage: 50 MG, DAILY
     Route: 062
     Dates: start: 2020
  5. NOVAMIN                            /00013301/ [Concomitant]
     Active Substance: PROCHLORPERAZINE
     Indication: NAUSEA
     Dosage: 5 MG, DAILY
     Route: 048
     Dates: start: 20200521
  6. DENOTAS [Concomitant]
     Active Substance: CALCIUM CARBONATE\CHOLECALCIFEROL\MAGNESIUM CARBONATE
     Indication: HYPOCALCAEMIA
     Dosage: 2 DF, DAILY
     Route: 048
     Dates: start: 20200602
  7. TAPENTADOL HYDROCHLORIDE [Suspect]
     Active Substance: TAPENTADOL HYDROCHLORIDE
     Dosage: 150 MG, DAILY
     Route: 048
     Dates: start: 20200525, end: 20200624
  8. ZINC. [Suspect]
     Active Substance: ZINC
     Indication: HYPOZINCAEMIA
     Dosage: 100 MG, DAILY
     Route: 048
     Dates: start: 20200629
  9. ZINC. [Suspect]
     Active Substance: ZINC
     Dosage: UNK
     Route: 048
  10. MAGMITT [Concomitant]
     Active Substance: MAGNESIUM OXIDE
     Dosage: 1980 MG, DAILY
     Route: 048
     Dates: start: 20200521
  11. CALONAL [Concomitant]
     Active Substance: ACETAMINOPHEN
     Indication: CANCER PAIN
     Dosage: 2000 MG, DAILY
     Route: 048
     Dates: start: 20200527
  12. ZINC ACETATE [Suspect]
     Active Substance: ZINC ACETATE
     Indication: HYPOZINCAEMIA
     Dosage: 100 MG, DAILY
     Route: 048
     Dates: start: 20200629
  13. SENNOSIDE                          /00571901/ [Concomitant]
     Active Substance: SENNOSIDES A AND B
     Indication: CONSTIPATION
     Dosage: 12 MG, DAILY
     Route: 048
     Dates: start: 2020
  14. MIYA?BM [Concomitant]
     Active Substance: CLOSTRIDIUM BUTYRICUM SPORES STRAIN M-55
     Indication: DIARRHOEA
     Dosage: UNK
     Route: 048
     Dates: start: 20200615
  15. SYMPROIC [Suspect]
     Active Substance: NALDEMEDINE
     Indication: CONSTIPATION
     Dosage: UNK
     Route: 048
     Dates: end: 20200708
  16. TAGRISSO [Suspect]
     Active Substance: OSIMERTINIB
     Indication: NON-SMALL CELL LUNG CANCER
     Dosage: 80 MG, DAILY
     Route: 048
     Dates: start: 20200602, end: 20200625
  17. SENNOSIDE                          /00571902/ [Concomitant]
     Active Substance: SENNOSIDES A AND B
     Indication: CONSTIPATION
     Dosage: 12 MG, DAILY
     Route: 048
     Dates: start: 2020
  18. EDIROL [Concomitant]
     Active Substance: ELDECALCITOL
     Indication: OSTEOPOROSIS
     Dosage: 1 MCG, DAILY
     Route: 048
     Dates: start: 2013
  19. OXINORM (OXYCODONE HYDROCHLORIDE) [Suspect]
     Active Substance: OXYCODONE HYDROCHLORIDE
     Indication: CANCER PAIN
     Dosage: 3 MG, PRN
     Route: 048
     Dates: start: 20200528
  20. SULPIRIDE [Suspect]
     Active Substance: SULPIRIDE
     Indication: NAUSEA
     Dosage: 50 MG, DAILY
     Route: 048
     Dates: start: 20200716
  21. ZINC ACETATE [Suspect]
     Active Substance: ZINC ACETATE
     Dosage: UNK
     Route: 048
  22. MAGMITT [Concomitant]
     Active Substance: MAGNESIUM OXIDE
     Indication: CONSTIPATION PROPHYLAXIS
     Dosage: UNK
     Route: 048
     Dates: start: 20200624
  23. ZYPREXA [Concomitant]
     Active Substance: OLANZAPINE
     Dosage: UNK
     Route: 048
     Dates: start: 20200624, end: 20200716
  24. BUSCOPAN [Concomitant]
     Active Substance: BUTYLSCOPOLAMINE BROMIDE
     Indication: ABDOMINAL PAIN
     Dosage: 10 MG, DAILY
     Route: 048
     Dates: start: 20200707
  25. SULPIRIDE [Suspect]
     Active Substance: SULPIRIDE
     Dosage: UNK
     Route: 048
  26. TAPENTADOL HYDROCHLORIDE [Suspect]
     Active Substance: TAPENTADOL HYDROCHLORIDE
     Indication: CANCER PAIN
     Dosage: 50 MG, DAILY
     Route: 048
     Dates: start: 20200717
  27. PRIMPERAN [Suspect]
     Active Substance: METOCLOPRAMIDE HYDROCHLORIDE
     Indication: NAUSEA
     Dosage: 15 MG, DAILY
     Route: 048
     Dates: start: 20200605, end: 20200624
  28. RANMARK [Concomitant]
     Active Substance: DENOSUMAB
     Indication: METASTASES TO BONE
     Dosage: 120 MG, DAILY
     Route: 058
     Dates: start: 20200602

REACTIONS (1)
  - Lung neoplasm malignant [Fatal]

NARRATIVE: CASE EVENT DATE: 20200818
